FAERS Safety Report 15326530 (Version 1)
Quarter: 2018Q3

REPORT INFORMATION
  Report Type: Spontaneous
  Country: US (occurrence: US)
  Receive Date: 20180828
  Receipt Date: 20180828
  Transmission Date: 20181010
  Serious: Yes (Hospitalization, Other)
  Sender: FDA-Public Use
  Company Number: US-SAREPTA THERAPEUTICS, INC-SRP-000144-2018

PATIENT
  Age: 22 Year
  Sex: Male

DRUGS (1)
  1. EXONDYS 51 [Suspect]
     Active Substance: ETEPLIRSEN
     Indication: MUSCULAR DYSTROPHY
     Dosage: 2000 MG, WEEKLY
     Route: 042
     Dates: start: 201709

REACTIONS (3)
  - Pneumonia [Unknown]
  - Pneumothorax [Unknown]
  - Malaise [Unknown]

NARRATIVE: CASE EVENT DATE: 20180809
